FAERS Safety Report 17052902 (Version 1)
Quarter: 2019Q4

REPORT INFORMATION
  Report Type: Spontaneous
  Country: US (occurrence: US)
  Receive Date: 20191120
  Receipt Date: 20191120
  Transmission Date: 20200122
  Serious: No
  Sender: FDA-Public Use
  Company Number: US-ALVOGEN-2019-ALVOGEN-100323

PATIENT
  Sex: Female
  Weight: 100.7 kg

DRUGS (4)
  1. METFORMIN HYDROCHLORIDE/SITAGLIPTIN PHOSPHATE MONOHYDR [Concomitant]
     Indication: DIABETES MELLITUS
     Dates: start: 2000
  2. EXENATIDE. [Suspect]
     Active Substance: EXENATIDE
     Indication: TYPE 2 DIABETES MELLITUS
     Route: 058
  3. GLIMEPIRIDE. [Concomitant]
     Active Substance: GLIMEPIRIDE
     Indication: DIABETES MELLITUS
     Dates: start: 2000
  4. LISINOPRIL. [Suspect]
     Active Substance: LISINOPRIL
     Indication: HYPERTENSION

REACTIONS (1)
  - Breast mass [Not Recovered/Not Resolved]
